FAERS Safety Report 26045585 (Version 1)
Quarter: 2025Q4

REPORT INFORMATION
  Report Type: Spontaneous
  Country: EU (occurrence: EU)
  Receive Date: 20251114
  Receipt Date: 20251114
  Transmission Date: 20260118
  Serious: Yes (Other)
  Sender: TETRAPHASE PHARMACEUTICALS, INC.
  Company Number: EU-TETRAPHASE PHARMACEUTICALS, INC-2025-ISTX-000219

PATIENT

DRUGS (4)
  1. XERAVA [Suspect]
     Active Substance: ERAVACYCLINE DIHYDROCHLORIDE
     Indication: Infection
     Dosage: 1 MG/KG, BID (EVERY 12 HOURS)
     Route: 042
  2. PIPERACILLIN SODIUM\TAZOBACTAM SODIUM [Suspect]
     Active Substance: PIPERACILLIN SODIUM\TAZOBACTAM SODIUM
     Indication: Infection
     Dosage: UNK
     Route: 065
  3. LINEZOLID [Suspect]
     Active Substance: LINEZOLID
     Indication: Infection
     Dosage: 600 MG, BID
     Route: 065
  4. AMPHOTERICIN B [Suspect]
     Active Substance: AMPHOTERICIN B
     Indication: Infection
     Dosage: 3 MG/KG, EVERY 24 HOURS
     Route: 065

REACTIONS (2)
  - Suspected drug-induced liver injury [Unknown]
  - Drug ineffective [Unknown]
